FAERS Safety Report 14071902 (Version 2)
Quarter: 2018Q4

REPORT INFORMATION
  Report Type: Spontaneous
  Country: US (occurrence: US)
  Receive Date: 20171010
  Receipt Date: 20181023
  Transmission Date: 20190204
  Serious: No
  Sender: FDA-Public Use
  Company Number: US-SA-2017SA141608

PATIENT
  Age: 58 Year
  Sex: Male

DRUGS (16)
  1. VITAMIN D3 [Concomitant]
     Active Substance: CHOLECALCIFEROL
  2. TAMSULOSIN [Concomitant]
     Active Substance: TAMSULOSIN
  3. THIAMINE. [Concomitant]
     Active Substance: THIAMINE
  4. ALPRAZOLAM. [Concomitant]
     Active Substance: ALPRAZOLAM
  5. AMITRIPTYLIN [Concomitant]
     Active Substance: AMITRIPTYLINE
  6. VALACYCLOVIR [VALACICLOVIR] [Concomitant]
  7. FENOFIBRATE. [Concomitant]
     Active Substance: FENOFIBRATE
  8. CLOBETASOL [Concomitant]
     Active Substance: CLOBETASOL
  9. OLOPATADINE. [Concomitant]
     Active Substance: OLOPATADINE
  10. EUCRISA [Concomitant]
     Active Substance: CRISABOROLE
  11. DUPIXENT [Suspect]
     Active Substance: DUPILUMAB
     Indication: DERMATITIS ATOPIC
     Dosage: 300 MG,QOW
     Route: 058
     Dates: start: 20170711
  12. DIOVAN [Concomitant]
     Active Substance: VALSARTAN
  13. ALLOPURINOL. [Concomitant]
     Active Substance: ALLOPURINOL
  14. PROAIR HFA [Concomitant]
     Active Substance: ALBUTEROL SULFATE
  15. METRONIDAZOLE. [Concomitant]
     Active Substance: METRONIDAZOLE
  16. ELIDEL [Concomitant]
     Active Substance: PIMECROLIMUS

REACTIONS (4)
  - Eczema [Recovered/Resolved]
  - Eye swelling [Not Recovered/Not Resolved]
  - Hypersensitivity [Not Recovered/Not Resolved]
  - Paraesthesia [Not Recovered/Not Resolved]

NARRATIVE: CASE EVENT DATE: 201707
